FAERS Safety Report 7033713-6 (Version None)
Quarter: 2010Q4

REPORT INFORMATION
  Report Type: 
  Country: None (occurrence: None)
  Receive Date: 20101007
  Receipt Date: 20100924
  Transmission Date: 20110411
  Serious: Yes (Hospitalization)
  Sender: FDA-Public Use
  Company Number: DE-MYLANLABS-2010S1015589

PATIENT
  Age: 76 Year
  Sex: Male
  Weight: 80 kg

DRUGS (8)
  1. CLINDAMYCIN [Suspect]
     Indication: TOOTH INFECTION
     Route: 048
     Dates: start: 20100524, end: 20100530
  2. AZATHIOPRINE [Interacting]
     Indication: MUSCULAR WEAKNESS
     Route: 048
     Dates: start: 20100101, end: 20100607
  3. PREDNISOLON [Interacting]
     Indication: MUSCULAR WEAKNESS
     Route: 048
     Dates: start: 20100301
  4. MESTINON [Interacting]
     Indication: MUSCULAR WEAKNESS
     Route: 048
     Dates: start: 20100301
  5. MESTINON [Interacting]
  6. TAMSULOSIN [Concomitant]
     Indication: BENIGN PROSTATIC HYPERPLASIA
     Route: 048
     Dates: start: 20040101
  7. OMEPRAZOLE [Concomitant]
     Indication: PROPHYLAXIS AGAINST GASTROINTESTINAL ULCER
     Route: 048
     Dates: start: 20080101
  8. FENTANYL [Concomitant]
     Indication: PAIN
     Dosage: FUR 72 STUNDEN (ALLE 3 TAGE)
     Route: 062
     Dates: start: 20090101

REACTIONS (2)
  - DIARRHOEA [None]
  - DRUG INTERACTION [None]
